FAERS Safety Report 9692788 (Version 1)
Quarter: 2013Q4

REPORT INFORMATION
  Report Type: Spontaneous
  Country: US (occurrence: None)
  Receive Date: 20131115
  Receipt Date: 20131115
  Transmission Date: 20140711
  Serious: No
  Sender: FDA-Public Use
  Company Number: None

PATIENT
  Age: 67 Year
  Sex: Female
  Weight: 74.84 kg

DRUGS (1)
  1. IMIPRAMINE [Suspect]
     Indication: DEPRESSION
     Dosage: 4 PILLS AT BEDTIME TAKEN BY MOUTH
     Dates: start: 20130423, end: 20130429

REACTIONS (2)
  - Tinnitus [None]
  - Product substitution issue [None]
